FAERS Safety Report 5601283-2 (Version None)
Quarter: 2008Q1

REPORT INFORMATION
  Report Type: 
  Country: None (occurrence: None)
  Receive Date: 20080124
  Receipt Date: 20080118
  Transmission Date: 20080703
  Serious: Yes (Hospitalization)
  Sender: FDA-Public Use
  Company Number: B0485315A

PATIENT
  Age: 80 Year
  Sex: Female
  Weight: 70 kg

DRUGS (2)
  1. ZOVIRAX [Suspect]
     Indication: HERPES ZOSTER
     Dosage: 250MG TWICE PER DAY
     Route: 042
     Dates: start: 20070820, end: 20070822
  2. VALTREX [Suspect]
     Indication: HERPES ZOSTER
     Dosage: 1000MG THREE TIMES PER DAY
     Route: 048
     Dates: start: 20070820, end: 20070822

REACTIONS (6)
  - DIZZINESS [None]
  - DYSURIA [None]
  - HALLUCINATION [None]
  - NERVOUS SYSTEM DISORDER [None]
  - RENAL FAILURE ACUTE [None]
  - URINE OUTPUT DECREASED [None]
